FAERS Safety Report 10133679 (Version 1)
Quarter: 2014Q2

REPORT INFORMATION
  Report Type: Spontaneous
  Country: US (occurrence: US)
  Receive Date: 20140428
  Receipt Date: 20140428
  Transmission Date: 20141212
  Serious: Yes (Other)
  Sender: FDA-Public Use
  Company Number: US-ROXANE LABORATORIES, INC.-2014-RO-00644RO

PATIENT
  Age: 38 Year
  Sex: Male

DRUGS (3)
  1. AZATHIOPRINE [Suspect]
     Indication: CROHN^S DISEASE
     Route: 065
  2. MERCAPTOPURINE [Suspect]
     Indication: CROHN^S DISEASE
     Route: 065
  3. INFLIXIMAB [Suspect]
     Indication: CROHN^S DISEASE
     Route: 065

REACTIONS (5)
  - Memory impairment [Recovered/Resolved]
  - Confusional state [Recovered/Resolved]
  - Amnesia [Recovered/Resolved]
  - Communication disorder [Recovered/Resolved]
  - Abnormal behaviour [Recovered/Resolved]
